FAERS Safety Report 9898074 (Version 2)
Quarter: 2014Q1

REPORT INFORMATION
  Report Type: Report from Study
  Country: US (occurrence: US)
  Receive Date: 20140214
  Receipt Date: 20140214
  Transmission Date: 20141002
  Serious: Yes (Death, Hospitalization)
  Sender: FDA-Public Use
  Company Number: US-ROCHE-1033194

PATIENT
  Age: 58 Year
  Sex: Female
  Weight: 81.3 kg

DRUGS (53)
  1. TRASTUZUMAB EMTANSINE [Suspect]
     Indication: BREAST CANCER METASTATIC
     Dosage: RECENT DOSE ON 17 JAN 2012, LAST DOSE: 293MG
     Route: 042
     Dates: start: 20110802
  2. LEVAQUIN [Concomitant]
     Indication: PNEUMONIA
     Route: 065
     Dates: start: 20120118, end: 20120120
  3. CEFEPIME [Concomitant]
     Indication: PNEUMONIA
     Route: 065
     Dates: start: 20120119, end: 20120120
  4. VANCOMYCIN [Concomitant]
     Indication: PNEUMONIA
     Route: 065
     Dates: start: 20120119, end: 20120122
  5. BIPAP [Concomitant]
  6. ONDANSETRON [Concomitant]
     Indication: NAUSEA
     Route: 065
     Dates: start: 20120202, end: 20120220
  7. FLUCONAZOLE [Concomitant]
     Indication: PNEUMONIA
     Route: 065
     Dates: start: 20120202, end: 20120206
  8. LISINOPRIL [Concomitant]
     Indication: HYPERTENSION
     Route: 065
     Dates: start: 2005, end: 20120119
  9. ATENOLOL [Concomitant]
     Indication: HYPERTENSION
     Route: 065
     Dates: start: 2006, end: 20120119
  10. CITALOPRAM [Concomitant]
     Indication: BIPOLAR DISORDER
     Route: 065
     Dates: start: 2006, end: 20120220
  11. LORAZEPAM [Concomitant]
     Indication: ANXIETY
     Route: 065
     Dates: start: 2006, end: 20120119
  12. LORAZEPAM [Concomitant]
     Indication: DEPRESSION
  13. HALOPERIDOL [Concomitant]
     Indication: BIPOLAR DISORDER
     Route: 065
     Dates: start: 2006, end: 20120220
  14. CRESTOR [Concomitant]
     Indication: HYPERLIPIDAEMIA
     Route: 065
     Dates: start: 2010, end: 20120220
  15. NIASPAN [Concomitant]
     Indication: HYPERLIPIDAEMIA
     Route: 065
     Dates: start: 2006, end: 20120119
  16. SINGULAIR [Concomitant]
     Indication: ASTHMA
     Route: 065
     Dates: start: 2006, end: 20120220
  17. ZANTAC [Concomitant]
     Indication: GASTROOESOPHAGEAL REFLUX DISEASE
     Route: 065
     Dates: start: 2006, end: 20120119
  18. OMEPRAZOLE [Concomitant]
     Indication: GASTROOESOPHAGEAL REFLUX DISEASE
     Route: 065
     Dates: start: 2006, end: 20120119
  19. ALBUTEROL [Concomitant]
     Indication: ASTHMA
     Route: 065
     Dates: start: 1984, end: 20120220
  20. FOSAMAX [Concomitant]
     Indication: OSTEOPOROSIS
     Route: 065
     Dates: start: 2011, end: 20120119
  21. VITAMIN D [Concomitant]
     Indication: OSTEOPOROSIS
     Route: 065
     Dates: start: 2011, end: 20120119
  22. LACTOSE ENZYMES [Concomitant]
     Route: 065
     Dates: start: 2006, end: 20120220
  23. COMPAZINE [Concomitant]
     Indication: NAUSEA
     Route: 065
     Dates: start: 20110802, end: 20120119
  24. COMPAZINE [Concomitant]
     Indication: VOMITING
  25. ZOLEDRONIC ACID [Concomitant]
     Indication: METASTASES TO BONE
     Route: 042
     Dates: start: 20110823, end: 20120117
  26. LORAZEPAM [Concomitant]
     Indication: DEPRESSION
     Route: 065
     Dates: start: 20110901, end: 20120220
  27. DURAGESIC [Concomitant]
     Indication: PAIN
     Route: 065
     Dates: start: 20120106, end: 20120119
  28. AZITHROMYCIN [Concomitant]
     Indication: PNEUMONIA
     Route: 065
     Dates: start: 20120120, end: 20120122
  29. LEVOFLOXACIN [Concomitant]
     Indication: PNEUMONIA
     Route: 065
     Dates: start: 20120118, end: 20120120
  30. LOVENOX [Concomitant]
     Indication: DEEP VEIN THROMBOSIS
     Route: 065
     Dates: start: 20120119, end: 20120212
  31. FAMOTIDINE [Concomitant]
     Indication: DYSPEPSIA
     Route: 065
     Dates: start: 20120119, end: 20120206
  32. FUROSEMIDE [Concomitant]
     Indication: POLYURIA
     Route: 065
     Dates: start: 20120119, end: 20120206
  33. MORPHINE [Concomitant]
     Indication: PAIN
     Route: 065
     Dates: start: 20120119, end: 20120220
  34. PANTOPRAZOLE [Concomitant]
     Indication: DYSPEPSIA
     Route: 065
     Dates: start: 20120119, end: 20120220
  35. NIACIN [Concomitant]
     Indication: PROPHYLAXIS
     Route: 065
     Dates: start: 20120119, end: 20120220
  36. PROPRANOLOL [Concomitant]
     Indication: HYPERTENSION
     Route: 065
     Dates: start: 20120119, end: 20120124
  37. PRAZOSIN [Concomitant]
     Indication: HYPERTENSION
     Route: 065
     Dates: start: 20120124, end: 20120220
  38. PROCHLORPERAZINE [Concomitant]
     Indication: NAUSEA
     Route: 065
     Dates: start: 20120119, end: 20120220
  39. METHYLPREDNISOLONE [Concomitant]
     Indication: PNEUMONIA
     Route: 065
     Dates: start: 20120205, end: 20120206
  40. PREDNISONE [Concomitant]
     Indication: PNEUMONIA
     Route: 065
     Dates: start: 20120130, end: 20120205
  41. VORICONAZOLE [Concomitant]
     Indication: PNEUMONIA
     Route: 065
     Dates: start: 20120206, end: 20120212
  42. METHYLPHENIDATE [Concomitant]
     Indication: DEPRESSION
     Route: 065
     Dates: start: 20120203, end: 20120220
  43. ACYCLOVIR [Concomitant]
     Indication: PNEUMONIA
     Route: 065
     Dates: start: 20120212, end: 20120220
  44. MIRALAX [Concomitant]
     Indication: CONSTIPATION
     Route: 065
     Dates: start: 20120123, end: 20120220
  45. FENTANYL [Concomitant]
     Indication: PAIN
     Route: 065
     Dates: start: 20120219, end: 20120219
  46. HYDROCODONE/ACETAMINOPHEN [Concomitant]
     Indication: PAIN
     Route: 065
     Dates: start: 20120121, end: 20120220
  47. INSULIN [Concomitant]
     Indication: HYPERGLYCAEMIA
     Route: 065
     Dates: start: 20120205, end: 20120220
  48. HYDROXYZINE [Concomitant]
     Indication: INSOMNIA
     Route: 065
     Dates: start: 20120201, end: 20120220
  49. SCOPOLAMINE [Concomitant]
     Indication: ABDOMINAL PAIN UPPER
     Route: 065
     Dates: start: 20120220, end: 20120221
  50. ATROPINE [Concomitant]
     Route: 065
     Dates: start: 20120220, end: 20120220
  51. ACETAMINOPHEN [Concomitant]
     Indication: PAIN
     Route: 065
     Dates: start: 20120119, end: 20120220
  52. ACETAMINOPHEN [Concomitant]
     Indication: PYREXIA
  53. PLACEBO [Suspect]
     Indication: BREAST CANCER METASTATIC
     Dosage: RECENT DOSE ON 17 JAN 2012
     Route: 042
     Dates: start: 20110802

REACTIONS (1)
  - Pneumonia [Fatal]
